FAERS Safety Report 8200009-6 (Version None)
Quarter: 2012Q1

REPORT INFORMATION
  Report Type: 
  Country: None (occurrence: None)
  Receive Date: 20120312
  Receipt Date: 20120310
  Transmission Date: 20120608
  Serious: No
  Sender: FDA-Public Use
  Company Number: US-PFIZER INC-2012063696

PATIENT
  Sex: Female
  Weight: 72.6 kg

DRUGS (4)
  1. FLINTSTONES MULTIPLE VITAMINS [Concomitant]
     Dosage: UNK, DAILY
  2. VITAMIN D [Concomitant]
     Dosage: 2000 IU, DAILY
  3. CELEBREX [Suspect]
     Indication: ARTHRALGIA
     Dosage: 200 MG, 2X/DAY
     Dates: start: 20120201, end: 20120310
  4. CALCIUM [Concomitant]
     Dosage: UNK, DAILY

REACTIONS (8)
  - MIDDLE INSOMNIA [None]
  - DRY EYE [None]
  - EYELIDS PRURITUS [None]
  - DRUG INEFFECTIVE [None]
  - PAIN [None]
  - VISION BLURRED [None]
  - ARTHRALGIA [None]
  - ERYTHEMA OF EYELID [None]
